FAERS Safety Report 6004465-3 (Version None)
Quarter: 2008Q4

REPORT INFORMATION
  Report Type: 
  Country: None (occurrence: None)
  Receive Date: 20081215
  Receipt Date: 20081215
  Transmission Date: 20090506
  Serious: Yes (Other)
  Sender: FDA-Public Use
  Company Number: None

PATIENT
  Age: 50 Year
  Sex: Female
  Weight: 87.5442 kg

DRUGS (1)
  1. PROVENTIL-HFA [Suspect]
     Indication: RESPIRATORY DISORDER
     Dosage: 2 PUFFS BY MOUTH EVERY 6 HOURS PO
     Route: 048
     Dates: start: 20080401, end: 20081029

REACTIONS (1)
  - PRODUCT QUALITY ISSUE [None]
